FAERS Safety Report 24709634 (Version 1)
Quarter: 2024Q4

REPORT INFORMATION
  Report Type: Spontaneous
  Country: GB (occurrence: GB)
  Receive Date: 20241209
  Receipt Date: 20241209
  Transmission Date: 20250115
  Serious: Yes (Other)
  Sender: DEXCEL
  Company Number: None

PATIENT
  Age: 67 Year
  Sex: Female
  Weight: 99 kg

DRUGS (5)
  1. AtorvastatinBENDROFLUAZIDE (Specific Substance SUB580) [Concomitant]
  2. BendroflumethiazideATORVASTATIN (Specific Substance SUB7358) [Concomitant]
  3. FLUCLOXACILLIN [Interacting]
     Active Substance: FLUCLOXACILLIN
     Indication: Nail infection
     Dosage: 500MG
     Dates: end: 20241123
  4. OMEPRAZOLE [Interacting]
     Active Substance: OMEPRAZOLE
     Indication: Gastrooesophageal reflux disease
     Dates: start: 20100101
  5. Irbesartan IRBESARTAN (Specific Substance SUB7381) [Concomitant]

REACTIONS (4)
  - Dyspepsia [Unknown]
  - Drug interaction [Unknown]
  - Nausea [Unknown]
  - Gastritis [Unknown]

NARRATIVE: CASE EVENT DATE: 20241122
